FAERS Safety Report 12685781 (Version 1)
Quarter: 2016Q3

REPORT INFORMATION
  Report Type: Not Available
  Country: FR (occurrence: FR)
  Receive Date: 20160825
  Receipt Date: 20160825
  Transmission Date: 20161109
  Serious: Yes (Other)
  Sender: FDA-Public Use
  Company Number: FR-PURDUE PHARMA-GBR-2016-0040070

PATIENT
  Age: 60 Year
  Sex: Female

DRUGS (34)
  1. LEVOTHYROX [Concomitant]
     Active Substance: LEVOTHYROXINE
  2. CLAMOXYL                           /00249601/ [Suspect]
     Active Substance: AMOXICILLIN
     Indication: OSTEITIS
     Dosage: 16 G, DAILY
     Route: 048
     Dates: start: 20160701, end: 20160705
  3. DALACINE                           /00166003/ [Suspect]
     Active Substance: CLINDAMYCIN\CLINDAMYCIN PHOSPHATE
     Indication: OSTEITIS
     Dosage: 9 DF, DAILY
     Route: 048
     Dates: start: 20160701, end: 20160704
  4. ARIXTRA [Suspect]
     Active Substance: FONDAPARINUX SODIUM
     Indication: PULMONARY EMBOLISM
     Dosage: 1 DF (10 MG/0.8ML), DAILY
     Route: 058
     Dates: start: 20160627, end: 20160704
  5. IPRATROPIUM BROMIDE. [Concomitant]
     Active Substance: IPRATROPIUM BROMIDE
  6. KARDEGIC [Concomitant]
     Active Substance: ASPIRIN LYSINE
  7. TARDYFERON [Concomitant]
     Active Substance: FERROUS SULFATE
  8. TIENAM [Concomitant]
     Active Substance: CILASTATIN SODIUM\IMIPENEM
  9. FUROSEMIDE. [Concomitant]
     Active Substance: FUROSEMIDE
  10. LEVEMIR [Concomitant]
     Active Substance: INSULIN DETEMIR
  11. UVEDOSE [Concomitant]
     Active Substance: CHOLECALCIFEROL
  12. OXYNORMORO COMPRIME ORODISPERSIBLE 10MG [Suspect]
     Active Substance: OXYCODONE HYDROCHLORIDE
     Indication: GAIT DISTURBANCE
     Dosage: UNK, PRN
     Route: 048
     Dates: start: 20160620, end: 20160704
  13. DEDROGYL [Suspect]
     Active Substance: CALCIFEDIOL
     Indication: VITAMIN D DEFICIENCY
     Dosage: 5 DROPS (15MG/100ML), DAILY
     Route: 048
     Dates: start: 20160629, end: 20160703
  14. LEVOFLOXACINE [Concomitant]
     Active Substance: LEVOFLOXACIN
  15. DIFFU K [Concomitant]
     Active Substance: POTASSIUM CHLORIDE
  16. DOLIPRANE [Concomitant]
     Active Substance: ACETAMINOPHEN
  17. SPECIAFOLDINE [Concomitant]
     Active Substance: FOLIC ACID
  18. TOPALGIC                           /00599202/ [Concomitant]
     Active Substance: TRAMADOL
  19. TEMESTA                            /00273201/ [Concomitant]
     Active Substance: LORAZEPAM
  20. BACTRIM [Concomitant]
     Active Substance: SULFAMETHOXAZOLE\TRIMETHOPRIM
  21. NOVORAPID [Concomitant]
     Active Substance: INSULIN ASPART
  22. PRIMPERAN [Concomitant]
     Active Substance: METOCLOPRAMIDE HYDROCHLORIDE
  23. LASILIX                            /00032601/ [Concomitant]
     Active Substance: FUROSEMIDE
  24. SETOFILM [Concomitant]
     Active Substance: ONDANSETRON
  25. ZYVOXID [Concomitant]
     Active Substance: LINEZOLID
  26. ESOMEPRAZOLE [Concomitant]
     Active Substance: ESOMEPRAZOLE
  27. MAGNE B6                           /00869101/ [Concomitant]
  28. TAHOR [Concomitant]
     Active Substance: ATORVASTATIN CALCIUM
  29. OXYCONTIN [Suspect]
     Active Substance: OXYCODONE HYDROCHLORIDE
     Indication: GAIT DISTURBANCE
     Dosage: 40 MG, DAILY
     Route: 048
     Dates: start: 20160620, end: 20160704
  30. ARANESP [Concomitant]
     Active Substance: DARBEPOETIN ALFA
  31. MONTELUKAST SODIUM. [Concomitant]
     Active Substance: MONTELUKAST SODIUM
  32. CEFEPIME [Concomitant]
     Active Substance: CEFEPIME HYDROCHLORIDE
  33. FRAGMINE [Concomitant]
     Active Substance: DALTEPARIN SODIUM
  34. SERETIDE [Concomitant]
     Active Substance: FLUTICASONE PROPIONATE\SALMETEROL XINAFOATE

REACTIONS (3)
  - Generalised erythema [Recovered/Resolved]
  - Eosinophilia [Recovered/Resolved]
  - Pruritus [Recovered/Resolved]

NARRATIVE: CASE EVENT DATE: 20160704
